FAERS Safety Report 8443489-3 (Version None)
Quarter: 2012Q2

REPORT INFORMATION
  Report Type: 
  Country: None (occurrence: None)
  Receive Date: 20120608
  Receipt Date: 20120522
  Transmission Date: 20120825
  Serious: Yes (Hospitalization)
  Sender: FDA-Public Use
  Company Number: JPI-P-021627

PATIENT
  Age: 28 Year
  Sex: Female
  Weight: 59.4212 kg

DRUGS (4)
  1. XYREM [Suspect]
     Indication: CATAPLEXY
     Dosage: ,ORAL,  6 GM (3 GM,2 IN 1 D),ORAL
     Route: 048
     Dates: start: 20120223
  2. XYREM [Suspect]
     Indication: CATAPLEXY
     Dosage: ,ORAL,  6 GM (3 GM,2 IN 1 D),ORAL
     Route: 048
     Dates: start: 20120101
  3. DEXTROAMPHETAMINE [Concomitant]
  4. AMPHETAMINE,DEXTROAMPHETAMINE MIXED SALTS [Concomitant]

REACTIONS (3)
  - CONGENITAL CYSTIC LUNG [None]
  - CONDITION AGGRAVATED [None]
  - UPPER RESPIRATORY TRACT INFECTION [None]
